FAERS Safety Report 4920296-7 (Version None)
Quarter: 2006Q1

REPORT INFORMATION
  Report Type: 
  Country: None (occurrence: None)
  Receive Date: 20060223
  Receipt Date: 20060125
  Transmission Date: 20060701
  Serious: Yes (Other)
  Sender: FDA-Public Use
  Company Number: DE-GLAXOSMITHKLINE-D0048542A

PATIENT
  Age: 52 Year
  Sex: Female

DRUGS (1)
  1. ZOVIRAX [Suspect]
     Route: 048

REACTIONS (1)
  - PYELONEPHRITIS [None]
